FAERS Safety Report 13485630 (Version 1)
Quarter: 2017Q2

REPORT INFORMATION
  Report Type: Spontaneous
  Country: US (occurrence: US)
  Receive Date: 20170425
  Receipt Date: 20170425
  Transmission Date: 20170830
  Serious: No
  Sender: FDA-Public Use
  Company Number: US-PFIZER INC-2017179163

PATIENT
  Age: 48 Year
  Sex: Female

DRUGS (2)
  1. GABAPENTIN. [Suspect]
     Active Substance: GABAPENTIN
     Indication: PAIN
     Dosage: 300 MG, 3X/DAY
     Route: 048
     Dates: start: 20170323
  2. GABAPENTIN. [Suspect]
     Active Substance: GABAPENTIN
     Dosage: WENT DOWN TO 2 TIMES A DAY
     Route: 048

REACTIONS (2)
  - Product use in unapproved indication [Unknown]
  - Dysphemia [Unknown]
